FAERS Safety Report 7045747-6 (Version None)
Quarter: 2010Q4

REPORT INFORMATION
  Report Type: 
  Country: None (occurrence: None)
  Receive Date: 20101014
  Receipt Date: 20101007
  Transmission Date: 20110411
  Serious: Yes (Other)
  Sender: FDA-Public Use
  Company Number: JP-SANOFI-AVENTIS-2010SA061856

PATIENT
  Age: 77 Year
  Sex: Male
  Weight: 65 kg

DRUGS (17)
  1. PLAVIX [Suspect]
     Route: 048
     Dates: start: 20081128, end: 20081128
  2. PLAVIX [Suspect]
     Route: 048
     Dates: start: 20081129
  3. ASPIRIN [Suspect]
     Indication: ANGINA PECTORIS
     Route: 048
  4. ARTIST [Concomitant]
     Route: 048
  5. GEFANIL [Concomitant]
     Route: 048
  6. GLYCYRON [Concomitant]
     Route: 048
  7. MEXITIL [Concomitant]
     Route: 048
  8. SIGMART [Concomitant]
     Indication: ANGINA PECTORIS
     Route: 048
  9. PREDONINE [Concomitant]
     Route: 048
  10. DOXAZOSIN MESYLATE [Concomitant]
     Route: 048
  11. MYSLEE [Concomitant]
     Route: 048
  12. PARIET [Concomitant]
     Route: 048
  13. AMOXICILLIN TRIHYDRATE [Concomitant]
     Route: 048
     Dates: end: 20090728
  14. FRANDOL [Concomitant]
     Indication: ANGINA PECTORIS
     Route: 062
  15. OLMETEC [Concomitant]
     Route: 048
     Dates: start: 20090120
  16. LASIX [Concomitant]
     Route: 048
     Dates: start: 20090610
  17. NORVASC [Concomitant]
     Route: 048
     Dates: start: 20090317

REACTIONS (2)
  - CORONARY ARTERY STENOSIS [None]
  - IN-STENT CORONARY ARTERY RESTENOSIS [None]
